FAERS Safety Report 24061377 (Version 1)
Quarter: 2024Q3

REPORT INFORMATION
  Report Type: Spontaneous
  Country: CN (occurrence: CN)
  Receive Date: 20240708
  Receipt Date: 20240708
  Transmission Date: 20241016
  Serious: Yes (Other)
  Sender: FRESENIUS KABI
  Company Number: CN-FreseniusKabi-FK202410380

PATIENT
  Age: 67 Year
  Sex: Female
  Weight: 43 kg

DRUGS (1)
  1. LACTULOSE [Suspect]
     Active Substance: LACTULOSE
     Indication: Faecal disimpaction
     Dosage: FORM OF ADMIN: ORAL SOLUTION
     Route: 048
     Dates: start: 20240625, end: 20240626

REACTIONS (1)
  - Abdominal pain [Recovering/Resolving]

NARRATIVE: CASE EVENT DATE: 20240626
